FAERS Safety Report 17213813 (Version 1)
Quarter: 2020Q1

REPORT INFORMATION
  Report Type: Spontaneous
  Country: US (occurrence: US)
  Receive Date: 20191227
  Receipt Date: 20191227
  Transmission Date: 20200409
  Serious: Yes (Other)
  Sender: FDA-Public Use
  Company Number: None

PATIENT
  Age: 70 Year
  Sex: Male

DRUGS (14)
  1. METHYLPRED [Concomitant]
     Active Substance: METHYLPREDNISOLONE
  2. FOLIC ACID. [Concomitant]
     Active Substance: FOLIC ACID
  3. OXYCODONE AND ACETAMINOPHEN [Concomitant]
     Active Substance: ACETAMINOPHEN\OXYCODONE HYDROCHLORIDE
  4. DOXYCYCL HYC [Concomitant]
  5. HUMIRA [Suspect]
     Active Substance: ADALIMUMAB
     Indication: PRODUCT USED FOR UNKNOWN INDICATION
     Dosage: ?          OTHER FREQUENCY:EVERY 2 WEEKS;?
     Route: 058
     Dates: start: 20190602
  6. ELIQUIS [Concomitant]
     Active Substance: APIXABAN
  7. METHOTREXATE. [Concomitant]
     Active Substance: METHOTREXATE
  8. OXYCODONE [Concomitant]
     Active Substance: OXYCODONE
  9. MAG OXIDE [Concomitant]
     Active Substance: MAGNESIUM OXIDE
  10. DIGOXIN. [Concomitant]
     Active Substance: DIGOXIN
  11. METOPROL SUC [Concomitant]
  12. CEFADROXIL. [Concomitant]
     Active Substance: CEFADROXIL
  13. PROMETH/COD [Concomitant]
  14. AZITHROMYCIN ANHYDROUS. [Concomitant]
     Active Substance: AZITHROMYCIN ANHYDROUS

REACTIONS (2)
  - Surgery [None]
  - Therapy cessation [None]

NARRATIVE: CASE EVENT DATE: 20191227
